FAERS Safety Report 8432767-X (Version None)
Quarter: 2012Q2

REPORT INFORMATION
  Report Type: 
  Country: None (occurrence: None)
  Receive Date: 20120613
  Receipt Date: 20120610
  Transmission Date: 20120825
  Serious: No
  Sender: FDA-Public Use
  Company Number: US-PFIZER INC-2012139518

PATIENT
  Age: 6 Year
  Sex: Female
  Weight: 18.594 kg

DRUGS (2)
  1. IBUPROFEN [Suspect]
     Indication: PYREXIA
     Dosage: UNK
  2. IBUPROFEN [Suspect]
     Dosage: UNK, 2X/DAY

REACTIONS (1)
  - PYREXIA [None]
